FAERS Safety Report 5043819-9 (Version None)
Quarter: 2006Q2

REPORT INFORMATION
  Report Type: 
  Country: None (occurrence: None)
  Receive Date: 20060601
  Receipt Date: 20060220
  Transmission Date: 20061013
  Serious: No
  Sender: FDA-Public Use
  Company Number: US200602004126

PATIENT
  Age: 55 Year
  Sex: Female

DRUGS (3)
  1. CYMBALTA [Suspect]
     Indication: DEPRESSION
     Dosage: 60 MG, DAILY (1/D), ORAL
     Route: 048
     Dates: start: 20050801
  2. WELLBUTRIN SR [Concomitant]
  3. TRAZODONE HCL [Concomitant]

REACTIONS (3)
  - DEPRESSION [None]
  - FEELING OF DESPAIR [None]
  - OBSESSIVE-COMPULSIVE DISORDER [None]
